FAERS Safety Report 23169177 (Version 1)
Quarter: 2023Q4

REPORT INFORMATION
  Report Type: Spontaneous
  Country: PT (occurrence: PT)
  Receive Date: 20231110
  Receipt Date: 20231110
  Transmission Date: 20240110
  Serious: Yes (Disabling, Other)
  Sender: FDA-Public Use
  Company Number: PT-INFARMED-J202310-695

PATIENT
  Age: 57 Year
  Sex: Female
  Weight: 38 kg

DRUGS (2)
  1. FUROSEMIDE [Suspect]
     Active Substance: FUROSEMIDE
     Indication: Hepatic cirrhosis
     Dosage: 80 MILLIGRAM, ONCE A DAY (INITIALLY IV, 40MG 8/8H, LATER PO UP TO 40MG BID)
     Route: 048
     Dates: start: 20231011, end: 20231023
  2. FUROSEMIDE [Suspect]
     Active Substance: FUROSEMIDE
     Indication: Hepatic cirrhosis
     Dosage: 40 MILLIGRAM, 3 TIMES A DAY (INITIALLY IV, 40MG 8/8H, LATER PO UP TO 40MG BID)
     Route: 042
     Dates: start: 20231005, end: 20231010

REACTIONS (1)
  - Ototoxicity [Not Recovered/Not Resolved]

NARRATIVE: CASE EVENT DATE: 20231012
